FAERS Safety Report 25886423 (Version 1)
Quarter: 2025Q4

REPORT INFORMATION
  Report Type: Spontaneous
  Country: US (occurrence: None)
  Receive Date: 20251004
  Receipt Date: 20251004
  Transmission Date: 20260118
  Serious: Yes (Disabling)
  Sender: FDA-CTU
  Company Number: None

PATIENT
  Age: 40 Year
  Sex: Female
  Weight: 63 kg

DRUGS (1)
  1. PROGESTERONE [Suspect]
     Active Substance: PROGESTERONE
     Indication: Hormone replacement therapy
     Dates: start: 20250901

REACTIONS (11)
  - Insomnia [None]
  - Depression [None]
  - Anxiety [None]
  - Irritability [None]
  - Incorrect dose administered [None]
  - Progesterone increased [None]
  - Prescribed overdose [None]
  - Neuropathy peripheral [None]
  - Injection site pain [None]
  - Injection site haematoma [None]
  - Circumstance or information capable of leading to medication error [None]
